FAERS Safety Report 4364662-X (Version None)
Quarter: 2004Q2

REPORT INFORMATION
  Report Type: 
  Country: None (occurrence: None)
  Receive Date: 20040521
  Receipt Date: 20040503
  Transmission Date: 20050107
  Serious: Yes (Death, Congenital Anomaly)
  Sender: FDA-Public Use
  Company Number: USA040566511

PATIENT

DRUGS (1)
  1. STRATTERA [Suspect]

REACTIONS (3)
  - ANENCEPHALY [None]
  - INTRA-UTERINE DEATH [None]
  - TRANSMISSION OF DRUG VIA SEMEN [None]
